FAERS Safety Report 16352893 (Version 3)
Quarter: 2019Q3

REPORT INFORMATION
  Report Type: Spontaneous
  Country: US (occurrence: US)
  Receive Date: 20190524
  Receipt Date: 20190809
  Transmission Date: 20191004
  Serious: No
  Sender: FDA-Public Use
  Company Number: US-PFIZER INC-2019027403

PATIENT
  Age: 56 Year
  Sex: Female

DRUGS (5)
  1. TRIAMTEREEN/HYDROCHLOORTHIAZIDE [Concomitant]
     Active Substance: HYDROCHLOROTHIAZIDE\TRIAMTERENE
     Indication: OEDEMA PERIPHERAL
     Dosage: 37.5/25 ONE PO ONCE DAILY
     Route: 048
     Dates: start: 201611
  2. STIOLTO RESPIMAT [Concomitant]
     Active Substance: OLODATEROL HYDROCHLORIDE\TIOTROPIUM BROMIDE MONOHYDRATE
     Indication: CHRONIC OBSTRUCTIVE PULMONARY DISEASE
     Dosage: 2.5/2.5 2 PUFFS EVERY NIGHT AT BEDTIME
     Dates: start: 201612
  3. BACLOFEN. [Concomitant]
     Active Substance: BACLOFEN
     Indication: SMALL FIBRE NEUROPATHY
     Dosage: 20 MG, AS NEEDED (20 MG ONE PO THRICE DAILY AS NEEDED)
     Route: 048
     Dates: start: 201802
  4. LYRICA [Suspect]
     Active Substance: PREGABALIN
     Indication: SMALL FIBRE NEUROPATHY
     Dosage: UNK
     Route: 048
     Dates: start: 201612
  5. LYRICA [Suspect]
     Active Substance: PREGABALIN
     Dosage: 100 MG AM AND AFTERNOON AND 150 MG EVERY NIGHT AT BEDTIME
     Route: 048
     Dates: start: 201802, end: 201902

REACTIONS (4)
  - Dizziness [Recovered/Resolved]
  - Intentional product misuse [Unknown]
  - Depression [Recovered/Resolved]
  - Somnolence [Recovered/Resolved]

NARRATIVE: CASE EVENT DATE: 201902
